FAERS Safety Report 12099930 (Version 1)
Quarter: 2016Q1

REPORT INFORMATION
  Report Type: Report from Study
  Country: IE (occurrence: IE)
  Receive Date: 20160222
  Receipt Date: 20160222
  Transmission Date: 20160526
  Serious: Yes (Other)
  Sender: FDA-Public Use
  Company Number: IE-AMGEN-IRLSL2016020479

PATIENT
  Age: 28 Year
  Sex: Female

DRUGS (5)
  1. NEULASTA [Suspect]
     Active Substance: PEGFILGRASTIM
     Indication: KERATINISING SQUAMOUS CELL CARCINOMA OF NASOPHARYNX
     Dosage: 6 MG, POST CHEMOTHERAPY 3 WEEKLY CYCLE
     Route: 058
     Dates: start: 20160128
  2. CYCLIZINE [Concomitant]
     Active Substance: CYCLIZINE
     Dosage: 50 MG, ONCE DAILY
     Route: 050
  3. NYSTATIN. [Concomitant]
     Active Substance: NYSTATIN
     Dosage: 1 ML, B.D
     Route: 050
  4. PANTOPRAZOLE [Concomitant]
     Active Substance: PANTOPRAZOLE SODIUM
     Dosage: 20 MG, UNK
     Route: 050
  5. DEXAMETHASONE. [Concomitant]
     Active Substance: DEXAMETHASONE
     Dosage: 2 MG, AS PER CHEMO PRESCRIPTION
     Route: 050

REACTIONS (1)
  - Deafness [Not Recovered/Not Resolved]
